FAERS Safety Report 23348468 (Version 1)
Quarter: 2023Q4

REPORT INFORMATION
  Report Type: Spontaneous
  Country: PL (occurrence: PL)
  Receive Date: 20231228
  Receipt Date: 20231228
  Transmission Date: 20240109
  Serious: Yes (Death, Life-Threatening, Hospitalization, Other)
  Sender: FDA-Public Use
  Company Number: PL-GILEAD-2019-0395700

PATIENT
  Age: 17 Year
  Sex: Male

DRUGS (22)
  1. AMBISOME [Suspect]
     Active Substance: AMPHOTERICIN B
     Indication: Disseminated aspergillosis
     Dosage: UNK
     Route: 065
  2. AMPHOTERICIN B [Suspect]
     Active Substance: AMPHOTERICIN B
     Indication: Disseminated aspergillosis
     Dosage: UNK
     Route: 065
  3. ASPARAGINASE [Suspect]
     Active Substance: ASPARAGINASE
     Indication: Acute lymphocytic leukaemia
     Dosage: 5000 IU, AS A PART OF ALL-IC-2009 PROTOCOL
     Route: 065
  4. ASPARAGINASE [Suspect]
     Active Substance: ASPARAGINASE
     Indication: T-cell type acute leukaemia
  5. CASPOFUNGIN ACETATE [Suspect]
     Active Substance: CASPOFUNGIN ACETATE
     Indication: Disseminated aspergillosis
     Dosage: UNK
     Route: 065
  6. DAUNORUBICIN [Suspect]
     Active Substance: DAUNORUBICIN
     Indication: Acute lymphocytic leukaemia
     Dosage: 30 MG/M2, UNK, AS A PART OF ALL-IC-2009 PROTOCOL
     Route: 048
  7. DAUNORUBICIN [Suspect]
     Active Substance: DAUNORUBICIN
     Indication: T-cell type acute leukaemia
  8. DEXAMETHASONE [Suspect]
     Active Substance: DEXAMETHASONE
     Indication: T-cell type acute leukaemia
     Dosage: UNK
     Route: 065
  9. ASPARAGINE [Suspect]
     Active Substance: ASPARAGINE
     Indication: Acute lymphocytic leukaemia
     Dosage: 5000 IU, UNK, AS A PART OF ALL-IC-2009 PROTOCOL
     Route: 065
  10. ASPARAGINE [Suspect]
     Active Substance: ASPARAGINE
     Indication: T-cell type acute leukaemia
  11. METHOTREXATE [Suspect]
     Active Substance: METHOTREXATE
     Indication: Acute lymphocytic leukaemia
     Dosage: 12 MG PER DOSE
     Route: 037
  12. METHOTREXATE [Suspect]
     Active Substance: METHOTREXATE
     Indication: T-cell type acute leukaemia
  13. MITOXANTRONE [Suspect]
     Active Substance: MITOXANTRONE HYDROCHLORIDE
     Indication: T-cell type acute leukaemia
     Dosage: AS A PART OF INTREALL 2010 RELAPSE PROTOCOL
     Route: 065
  14. PEGASPARGASE [Suspect]
     Active Substance: PEGASPARGASE
     Indication: T-cell type acute leukaemia
     Dosage: UNK, AS A PART OF INTREALL 2010 RELAPSE PROTOCOL
     Route: 065
  15. PREDNISOLONE [Suspect]
     Active Substance: PREDNISOLONE
     Indication: T-cell type acute leukaemia
     Dosage: UNK
     Route: 065
  16. PREDNISONE [Suspect]
     Active Substance: PREDNISONE
     Indication: Acute lymphocytic leukaemia
     Dosage: 60 MG/M2, QD
     Route: 048
  17. PREDNISONE [Suspect]
     Active Substance: PREDNISONE
     Indication: T-cell type acute leukaemia
  18. VORICONAZOLE [Suspect]
     Active Substance: VORICONAZOLE
     Indication: Disseminated aspergillosis
     Dosage: UNK
     Route: 065
  19. VINCRISTINE SULFATE [Suspect]
     Active Substance: VINCRISTINE SULFATE
     Indication: Acute lymphocytic leukaemia
     Dosage: 1.5 MG/M2 PER DOSE AS A PART OF INTREALL 2010 RELAPSE PROTOCOL AND ALL-IC-2009 PROTOCOL
     Route: 042
  20. MERCAPTOPURINE [Concomitant]
     Active Substance: MERCAPTOPURINE
     Indication: T-cell type acute leukaemia
     Dosage: UNK
     Route: 065
  21. CYCLOPHOSPHAMIDE [Concomitant]
     Active Substance: CYCLOPHOSPHAMIDE
     Indication: T-cell type acute leukaemia
     Dosage: UNK
     Route: 065
  22. CYTARABINE [Concomitant]
     Active Substance: CYTARABINE
     Indication: T-cell type acute leukaemia
     Dosage: UNK
     Route: 065

REACTIONS (14)
  - Drug ineffective [Fatal]
  - Therapeutic response decreased [Fatal]
  - Myelosuppression [Fatal]
  - Renal failure [Fatal]
  - Multiple organ dysfunction syndrome [Fatal]
  - Cardiac failure [Fatal]
  - Septic shock [Fatal]
  - Leukopenia [Fatal]
  - Disseminated aspergillosis [Fatal]
  - Respiratory failure [Fatal]
  - Agranulocytosis [Not Recovered/Not Resolved]
  - Abscess fungal [Not Recovered/Not Resolved]
  - Pyrexia [Not Recovered/Not Resolved]
  - Pancreatitis acute [Unknown]
